FAERS Safety Report 7225742-4 (Version None)
Quarter: 2011Q1

REPORT INFORMATION
  Report Type: 
  Country: None (occurrence: None)
  Receive Date: 20110113
  Receipt Date: 20110110
  Transmission Date: 20110831
  Serious: Yes (Other)
  Sender: FDA-Public Use
  Company Number: US-ABBOTT-11P-163-0696596-00

PATIENT
  Age: 57 Year
  Sex: Female

DRUGS (4)
  1. HUMIRA [Suspect]
     Indication: RHEUMATOID ARTHRITIS
     Dates: start: 20050101
  2. HUMIRA [Suspect]
  3. HUMIRA [Suspect]
     Dates: start: 20101201
  4. HUMIRA [Suspect]
     Dates: end: 20091201

REACTIONS (3)
  - MYOCARDIAL INFARCTION [None]
  - DRUG INEFFECTIVE [None]
  - INJECTION SITE PAIN [None]
